FAERS Safety Report 11731138 (Version 1)
Quarter: 2015Q4

REPORT INFORMATION
  Report Type: Spontaneous
  Country: US (occurrence: US)
  Receive Date: 20151110
  Receipt Date: 20151110
  Transmission Date: 20160304
  Serious: No
  Sender: FDA-Public Use
  Company Number: US-ELI_LILLY_AND_COMPANY-US201202006218

PATIENT
  Age: 63 Year
  Sex: Female

DRUGS (6)
  1. FORTEO [Suspect]
     Active Substance: TERIPARATIDE
     Dosage: 20 UG, QOD
     Route: 065
     Dates: start: 20120219
  2. FORTEO [Suspect]
     Active Substance: TERIPARATIDE
     Dosage: 20 UG, QD
  3. FORTEO [Suspect]
     Active Substance: TERIPARATIDE
     Dosage: 20 UG, QD
  4. FORTEO [Suspect]
     Active Substance: TERIPARATIDE
     Indication: OSTEOPOROSIS
     Dosage: 20 UG, QD
     Route: 065
     Dates: start: 201201
  5. SYNTHROID [Concomitant]
     Active Substance: LEVOTHYROXINE SODIUM
  6. DEPO-MEDROL [Concomitant]
     Active Substance: METHYLPREDNISOLONE ACETATE

REACTIONS (16)
  - Paraesthesia [Unknown]
  - Fibromyalgia [Unknown]
  - Hot flush [Unknown]
  - Medication error [Unknown]
  - Musculoskeletal discomfort [Unknown]
  - Myalgia [Recovered/Resolved]
  - Feeling hot [Unknown]
  - Malaise [Unknown]
  - Myalgia [Unknown]
  - Muscular weakness [Unknown]
  - Spinal disorder [Unknown]
  - Spinal pain [Unknown]
  - Fatigue [Unknown]
  - Drug prescribing error [Not Recovered/Not Resolved]
  - Pain [Not Recovered/Not Resolved]
  - Asthenia [Not Recovered/Not Resolved]

NARRATIVE: CASE EVENT DATE: 201201
